FAERS Safety Report 22079729 (Version 2)
Quarter: 2024Q1

REPORT INFORMATION
  Report Type: Spontaneous
  Country: US (occurrence: US)
  Receive Date: 20230309
  Receipt Date: 20240131
  Transmission Date: 20240410
  Serious: No
  Sender: FDA-Public Use
  Company Number: US-PFIZER INC-202300099977

PATIENT
  Age: 60 Year
  Sex: Male

DRUGS (2)
  1. INLYTA [Suspect]
     Active Substance: AXITINIB
     Dosage: 5 MG, CYCLIC (EVERY 12 HOURS FOR 21 DAYS OF 28 DAY CYCLE)
     Route: 048
     Dates: start: 20230120, end: 202312
  2. INLYTA [Suspect]
     Active Substance: AXITINIB
     Dosage: (1 MG TABLET-3 TABLETS EVERY 12 HOURS)
     Route: 048

REACTIONS (6)
  - Fatigue [Not Recovered/Not Resolved]
  - Dry mouth [Not Recovered/Not Resolved]
  - Dry skin [Not Recovered/Not Resolved]
  - Diarrhoea [Not Recovered/Not Resolved]
  - Off label use [Unknown]
  - Product use issue [Unknown]

NARRATIVE: CASE EVENT DATE: 20230101
